FAERS Safety Report 18019315 (Version 5)
Quarter: 2022Q1

REPORT INFORMATION
  Report Type: Report from Study
  Country: AR (occurrence: AR)
  Receive Date: 20200714
  Receipt Date: 20220316
  Transmission Date: 20220423
  Serious: Yes (Other)
  Sender: FDA-Public Use
  Company Number: NVSC2020AR196316

PATIENT
  Age: 73 Year
  Sex: Female

DRUGS (7)
  1. COSENTYX [Suspect]
     Active Substance: SECUKINUMAB
     Indication: Psoriatic arthropathy
     Dosage: 150 MG, QMO
     Route: 058
     Dates: start: 20171103
  2. COSENTYX [Suspect]
     Active Substance: SECUKINUMAB
     Indication: Psoriasis
     Dosage: 150 MG, QMO
     Route: 058
     Dates: start: 20200722
  3. COSENTYX [Suspect]
     Active Substance: SECUKINUMAB
     Dosage: 300 MG, QMO
     Route: 058
  4. HYDROCHLOROTHIAZIDE\LOSARTAN POTASSIUM [Suspect]
     Active Substance: HYDROCHLOROTHIAZIDE\LOSARTAN POTASSIUM
     Indication: Hypertension
     Dosage: UNK
     Route: 065
  5. TAFIROL [Concomitant]
     Indication: Pain
     Dosage: UNK (ONLY TOOK WHEN PAIN)
     Route: 065
  6. ALPRAZOLAM [Concomitant]
     Active Substance: ALPRAZOLAM
     Indication: Sleep disorder
     Dosage: 1 MG, QD (EVERY NIGHT FROM APPROXIMATELY 20 YEARS AGO)
     Route: 065
  7. OMEPRAZOLE [Concomitant]
     Active Substance: OMEPRAZOLE
     Indication: Gastrooesophageal reflux disease
     Dosage: 50 MG, QD (EVERY MORNING FROM APPROXIMATELY 20 YEARS AGO)
     Route: 065

REACTIONS (22)
  - Arrhythmia [Unknown]
  - Heart rate increased [Recovered/Resolved]
  - Chest pain [Unknown]
  - Stress [Not Recovered/Not Resolved]
  - Rash [Not Recovered/Not Resolved]
  - Cardiac disorder [Not Recovered/Not Resolved]
  - Blood pressure abnormal [Not Recovered/Not Resolved]
  - Depression [Not Recovered/Not Resolved]
  - Bronchitis [Recovered/Resolved]
  - Dyspnoea [Recovered/Resolved]
  - Cough [Recovered/Resolved]
  - Secretion discharge [Recovered/Resolved]
  - Hypertension [Recovered/Resolved]
  - Chills [Unknown]
  - Dyspnoea [Unknown]
  - Cough [Unknown]
  - Secretion discharge [Unknown]
  - Toothache [Recovering/Resolving]
  - Blood pressure increased [Not Recovered/Not Resolved]
  - Nervousness [Not Recovered/Not Resolved]
  - Blood cholesterol increased [Unknown]
  - Drug ineffective [Unknown]

NARRATIVE: CASE EVENT DATE: 20191201
